FAERS Safety Report 19792409 (Version 3)
Quarter: 2022Q1

REPORT INFORMATION
  Report Type: Spontaneous
  Country: US (occurrence: US)
  Receive Date: 20210906
  Receipt Date: 20220107
  Transmission Date: 20220423
  Serious: Yes (Hospitalization, Other)
  Sender: FDA-Public Use
  Company Number: US-TAKEDA-2021TUS053218

PATIENT
  Age: 79 Year
  Sex: Male

DRUGS (2)
  1. NINLARO [Suspect]
     Active Substance: IXAZOMIB CITRATE
     Indication: Plasma cell myeloma
     Dosage: 3 MILLIGRAM, 1/WEEK
     Route: 048
     Dates: start: 20210721
  2. NINLARO [Suspect]
     Active Substance: IXAZOMIB CITRATE
     Dosage: 2.3 MILLIGRAM, 1/WEEK
     Route: 048

REACTIONS (8)
  - Atrial fibrillation [Not Recovered/Not Resolved]
  - Gait inability [Not Recovered/Not Resolved]
  - Abdominal pain upper [Not Recovered/Not Resolved]
  - Sepsis [Not Recovered/Not Resolved]
  - Pericardial effusion [Not Recovered/Not Resolved]
  - Transient ischaemic attack [Unknown]
  - Rash [Unknown]
  - Dermatitis infected [Unknown]

NARRATIVE: CASE EVENT DATE: 20211229
